FAERS Safety Report 7812141-7 (Version None)
Quarter: 2011Q4

REPORT INFORMATION
  Report Type: 
  Country: None (occurrence: None)
  Receive Date: 20111013
  Receipt Date: 20111007
  Transmission Date: 20120403
  Serious: Yes (Life-Threatening, Other)
  Sender: FDA-Public Use
  Company Number: US-ELI_LILLY_AND_COMPANY-US201110002477

PATIENT

DRUGS (4)
  1. CIALIS [Suspect]
     Indication: ERECTILE DYSFUNCTION
     Dosage: 5 MG, QD
     Dates: start: 20110805
  2. VIAGRA [Concomitant]
     Dosage: 100 MG, UNKNOWN
  3. CIALIS [Suspect]
     Dosage: 5 MG, QD
     Dates: start: 20110805
  4. VIAGRA [Concomitant]
     Indication: ERECTILE DYSFUNCTION
     Dosage: 100 MG, UNKNOWN

REACTIONS (4)
  - DRUG INEFFECTIVE [None]
  - MATERNAL EXPOSURE BEFORE PREGNANCY [None]
  - CARDIO-RESPIRATORY ARREST [None]
  - OFF LABEL USE [None]
